FAERS Safety Report 8769250 (Version 2)
Quarter: 2012Q4

REPORT INFORMATION
  Report Type: 
  Country: US (occurrence: US)
  Receive Date: 20120904
  Receipt Date: 20121123
  Transmission Date: 20130627
  Serious: No
  Sender: FDA-Public Use
  Company Number: US-PFIZER INC-2012214396

PATIENT
  Age: 47 Year
  Sex: Female

DRUGS (7)
  1. IBUPROFEN [Suspect]
     Dosage: UNK
  2. SEPTRA [Suspect]
     Dosage: UNK
  3. CODEINE [Suspect]
     Dosage: UNK
  4. CIPRO [Suspect]
     Dosage: UNK
  5. ASA [Suspect]
     Dosage: UNK
  6. MACROBID [Suspect]
     Dosage: UNK
  7. IODINE [Suspect]
     Dosage: UNK

REACTIONS (1)
  - Drug hypersensitivity [Unknown]
